FAERS Safety Report 7331454-9 (Version None)
Quarter: 2011Q1

REPORT INFORMATION
  Report Type: 
  Country: None (occurrence: None)
  Receive Date: 20110224
  Receipt Date: 20110218
  Transmission Date: 20110831
  Serious: Yes (Other)
  Sender: FDA-Public Use
  Company Number: USA/USA/11/0017471

PATIENT
  Age: 15 Year
  Sex: Female
  Weight: 31.7518 kg

DRUGS (2)
  1. FEXOFENADINE HCL [Suspect]
     Indication: HYPERSENSITIVITY
     Dosage: 60 MG, 4 IN 1 D, ORAL
     Route: 048
     Dates: start: 20101218
  2. ZEGERID (OMEPRAZOLE) [Concomitant]

REACTIONS (1)
  - PETIT MAL EPILEPSY [None]
